FAERS Safety Report 9015096 (Version 1)
Quarter: 2013Q1

REPORT INFORMATION
  Report Type: Spontaneous
  Country: US (occurrence: None)
  Receive Date: 20130109
  Receipt Date: 20130109
  Transmission Date: 20140127
  Serious: Yes (Other)
  Sender: FDA-Public Use
  Company Number: None

PATIENT
  Age: 51 Year
  Sex: Male

DRUGS (2)
  1. PEGASYS 180MCG GENENTECH [Suspect]
     Route: 058
     Dates: start: 20120224, end: 20130106
  2. RIBAVIRIN 200MG TAB ZYDUS [Suspect]
     Route: 048
     Dates: start: 20120824, end: 20130106

REACTIONS (1)
  - Anaemia [None]
